FAERS Safety Report 23770518 (Version 1)
Quarter: 2024Q2

REPORT INFORMATION
  Report Type: Spontaneous
  Country: HR (occurrence: HR)
  Receive Date: 20240422
  Receipt Date: 20240422
  Transmission Date: 20240716
  Serious: Yes (Hospitalization, Other)
  Sender: FDA-Public Use
  Company Number: HR-002147023-NVSC2024HR083231

PATIENT
  Age: 64 Year
  Sex: Male

DRUGS (2)
  1. DABRAFENIB [Suspect]
     Active Substance: DABRAFENIB
     Indication: BRAF V600E mutation positive
     Dosage: 75 MG, 2X2
     Route: 065
     Dates: start: 202208
  2. MEKINIST [Suspect]
     Active Substance: TRAMETINIB DIMETHYL SULFOXIDE
     Indication: BRAF V600E mutation positive
     Dosage: 2 MG, QD
     Route: 065
     Dates: start: 202208

REACTIONS (2)
  - Coronary artery disease [Unknown]
  - Disease progression [Unknown]

NARRATIVE: CASE EVENT DATE: 20221201
